FAERS Safety Report 7033184-X (Version None)
Quarter: 2010Q4

REPORT INFORMATION
  Report Type: 
  Country: None (occurrence: None)
  Receive Date: 20101007
  Receipt Date: 20101004
  Transmission Date: 20110411
  Serious: Yes (Death)
  Sender: FDA-Public Use
  Company Number: US-MERCK-1010USA00232

PATIENT
  Sex: Male

DRUGS (2)
  1. SINEMET [Suspect]
     Route: 048
  2. COUMADIN [Concomitant]
     Indication: ANTICOAGULANT THERAPY
     Route: 065

REACTIONS (3)
  - DEATH [None]
  - HAEMORRHAGE [None]
  - INFLUENZA [None]
